FAERS Safety Report 9163538 (Version 2)
Quarter: 2013Q2

REPORT INFORMATION
  Report Type: Spontaneous
  Country: SI (occurrence: SI)
  Receive Date: 20130314
  Receipt Date: 20130507
  Transmission Date: 20140414
  Serious: Yes (Death, Hospitalization)
  Sender: FDA-Public Use
  Company Number: SI-ABBOTT-13P-261-1061723-00

PATIENT
  Age: 50 Year
  Sex: Male
  Weight: 82 kg

DRUGS (6)
  1. HUMIRA [Suspect]
     Indication: PSORIASIS
     Route: 058
     Dates: start: 20090406, end: 20110415
  2. HUMIRA [Suspect]
     Route: 058
     Dates: start: 201108
  3. CEVOSAN [Suspect]
     Indication: SUICIDE ATTEMPT
  4. CIPRALEX [Concomitant]
     Indication: SUICIDE ATTEMPT
     Dosage: IN THE MORNING
     Route: 048
  5. LOQUEN [Concomitant]
     Indication: SUICIDE ATTEMPT
     Dosage: 2X25 MGPP
     Route: 048
  6. DEPAKINE CHRONO [Concomitant]
     Indication: SUICIDE ATTEMPT
     Dosage: IN THE EVENING
     Route: 048

REACTIONS (2)
  - Completed suicide [Fatal]
  - Suicide attempt [Recovered/Resolved]
